FAERS Safety Report 11026040 (Version 6)
Quarter: 2015Q2

REPORT INFORMATION
  Report Type: Report from Study
  Country: DE (occurrence: DE)
  Receive Date: 20150414
  Receipt Date: 20150608
  Transmission Date: 20150821
  Serious: Yes (Life-Threatening, Hospitalization, Disabling)
  Sender: FDA-Public Use
  Company Number: DE-PFIZER INC-2015124966

PATIENT
  Age: 56 Year
  Sex: Male
  Weight: 86 kg

DRUGS (6)
  1. MYLOTARG [Suspect]
     Active Substance: GEMTUZUMAB OZOGAMICIN
     Indication: ACUTE MYELOID LEUKAEMIA
     Dosage: 6.15 MG, CYCLIC
     Route: 042
     Dates: start: 20150226, end: 20150226
  2. VESANOID [Concomitant]
     Active Substance: TRETINOIN
     Indication: ACUTE MYELOID LEUKAEMIA
     Dosage: 90 MG, CYCLIC
     Route: 042
     Dates: start: 20150303, end: 20150305
  3. VEPESID [Suspect]
     Active Substance: ETOPOSIDE
     Indication: ACUTE MYELOID LEUKAEMIA
     Dosage: 205 MG, CYCLIC
     Route: 042
     Dates: start: 20150226, end: 20150228
  4. VESANOID [Concomitant]
     Active Substance: TRETINOIN
     Dosage: 30 MG, CYCLIC
     Route: 042
     Dates: start: 20150306, end: 20150319
  5. ZAVEDOS [Suspect]
     Active Substance: IDARUBICIN
     Indication: ACUTE MYELOID LEUKAEMIA
     Dosage: 20.5 MG, CYCLIC
     Route: 042
     Dates: start: 20150226, end: 20150228
  6. ARA-CELL [Suspect]
     Active Substance: CYTARABINE
     Indication: ACUTE MYELOID LEUKAEMIA
     Dosage: 205 MG, CYCLIC
     Route: 042
     Dates: start: 20150226, end: 20150302

REACTIONS (1)
  - Intra-abdominal haemorrhage [Not Recovered/Not Resolved]

NARRATIVE: CASE EVENT DATE: 20150406
